FAERS Safety Report 7238863-7 (Version None)
Quarter: 2011Q1

REPORT INFORMATION
  Report Type: 
  Country: None (occurrence: None)
  Receive Date: 20110121
  Receipt Date: 20110111
  Transmission Date: 20110831
  Serious: Yes (Hospitalization, Other)
  Sender: FDA-Public Use
  Company Number: PHEH2006US11631

PATIENT
  Sex: Female

DRUGS (25)
  1. ZOMETA [Suspect]
  2. OXYCONTIN [Concomitant]
  3. TAMOXIFEN [Concomitant]
  4. HERCEPTIN [Concomitant]
  5. ALTACE [Concomitant]
     Dosage: 10 MG, BID
  6. AMBIEN [Concomitant]
  7. NEXIUM [Concomitant]
  8. FLONASE [Concomitant]
  9. FASLODEX [Concomitant]
     Indication: BREAST CANCER METASTATIC
  10. XELODA [Concomitant]
     Indication: BREAST CANCER METASTATIC
     Dosage: UNK
     Dates: end: 20050401
  11. AROMASIN [Concomitant]
     Indication: BREAST CANCER METASTATIC
  12. K-DUR [Concomitant]
  13. AREDIA [Suspect]
  14. NEURONTIN [Concomitant]
  15. TAXOTERE [Concomitant]
     Indication: BREAST CANCER METASTATIC
  16. LASIX [Concomitant]
  17. AUGMENTAN ORAL [Concomitant]
     Route: 048
  18. COMPAZINE [Concomitant]
  19. DECADRON [Concomitant]
  20. REQUIP [Concomitant]
  21. DARVOCET-N 100 [Concomitant]
  22. ADRIAMYCIN PFS [Concomitant]
     Indication: BREAST CANCER METASTATIC
  23. ARANESP [Concomitant]
  24. COUMADIN [Concomitant]
  25. NAVELBINE [Concomitant]
     Indication: BREAST CANCER METASTATIC

REACTIONS (52)
  - METASTASIS [None]
  - SPINAL COMPRESSION FRACTURE [None]
  - HYPERTENSION [None]
  - DYSPNOEA [None]
  - OSTEOARTHRITIS [None]
  - GLAUCOMA [None]
  - ROTATOR CUFF SYNDROME [None]
  - CARDIAC FAILURE CONGESTIVE [None]
  - BREAST CANCER METASTATIC [None]
  - LUNG NEOPLASM [None]
  - PULMONARY OEDEMA [None]
  - JOINT EFFUSION [None]
  - UTERINE PROLAPSE [None]
  - PNEUMONIA [None]
  - BONE LESION [None]
  - SWELLING [None]
  - LUNG INFILTRATION [None]
  - LEFT VENTRICULAR HYPERTROPHY [None]
  - ANIMAL BITE [None]
  - GASTROOESOPHAGEAL REFLUX DISEASE [None]
  - UTERINE ATONY [None]
  - RESPIRATORY FAILURE [None]
  - ESCHERICHIA INFECTION [None]
  - FLUID OVERLOAD [None]
  - NAUSEA [None]
  - RHINITIS [None]
  - OSTEONECROSIS OF JAW [None]
  - METASTASES TO BONE [None]
  - PERICARDIAL EFFUSION [None]
  - ANAEMIA [None]
  - PELVIC PAIN [None]
  - MITRAL VALVE INCOMPETENCE [None]
  - ENTEROCOCCAL INFECTION [None]
  - HEADACHE [None]
  - LYMPHOEDEMA [None]
  - CARDIOMEGALY [None]
  - PLEURAL EFFUSION [None]
  - METASTASES TO LIVER [None]
  - METASTASES TO CENTRAL NERVOUS SYSTEM [None]
  - MUSCULOSKELETAL PAIN [None]
  - RENAL CYST [None]
  - BRACHIAL PLEXOPATHY [None]
  - URINE OUTPUT DECREASED [None]
  - MYOSITIS [None]
  - CHOLELITHIASIS [None]
  - MUSCULAR WEAKNESS [None]
  - PULMONARY HYPERTENSION [None]
  - NEUTROPENIA [None]
  - FEBRILE NEUTROPENIA [None]
  - OCULAR HYPERTENSION [None]
  - DRY EYE [None]
  - CELLULITIS [None]
